FAERS Safety Report 4337303-5 (Version None)
Quarter: 2004Q2

REPORT INFORMATION
  Report Type: 
  Country: None (occurrence: None)
  Receive Date: 20040408
  Receipt Date: 20040213
  Transmission Date: 20050107
  Serious: Yes (Hospitalization)
  Sender: FDA-Public Use
  Company Number: 2004010526

PATIENT
  Age: 72 Year
  Sex: Male

DRUGS (10)
  1. NORVASC [Suspect]
     Indication: ARRHYTHMIA
     Dosage: 2.5 MG, ORAL
     Route: 048
     Dates: start: 20020301, end: 20031001
  2. DILTIAZEM HYDROCHLORIDE [Suspect]
     Indication: HYPERTENSION
     Dosage: 100 MG (DAILY), ORAL
     Route: 048
     Dates: start: 20031009, end: 20031020
  3. FUROSEMIDE [Concomitant]
  4. DIPYRIDAMOLE [Concomitant]
  5. DENOPAMINE [Concomitant]
  6. PRAVASTATIN SODIUM [Concomitant]
  7. THEOPHYLLINE [Concomitant]
  8. FAMOTIDINE [Concomitant]
  9. GLYBURIDE [Concomitant]
  10. TICLOPIDINE HYDROCHLORIDE [Concomitant]

REACTIONS (10)
  - ASTHMA [None]
  - COLON CANCER [None]
  - DRUG ERUPTION [None]
  - FACE OEDEMA [None]
  - LIVER FUNCTION TEST ABNORMAL [None]
  - PLATELET COUNT DECREASED [None]
  - PRURITUS [None]
  - RASH MORBILLIFORM [None]
  - SKIN TEST POSITIVE [None]
  - WHITE BLOOD CELL COUNT DECREASED [None]
